FAERS Safety Report 8158009-0 (Version None)
Quarter: 2012Q1

REPORT INFORMATION
  Report Type: 
  Country: None (occurrence: None)
  Receive Date: 20120222
  Receipt Date: 20120213
  Transmission Date: 20120608
  Serious: Yes (Other)
  Sender: FDA-Public Use
  Company Number: PHHY2012BR013616

PATIENT
  Sex: Female

DRUGS (2)
  1. TRILEPTAL [Suspect]
     Dosage: 0.5 DF, DAILY
  2. TRILEPTAL [Suspect]
     Dosage: 2 DF, DAILY

REACTIONS (3)
  - DRUG INTOLERANCE [None]
  - THROMBOSIS [None]
  - INCORRECT DOSE ADMINISTERED [None]
